FAERS Safety Report 25042578 (Version 1)
Quarter: 2025Q1

REPORT INFORMATION
  Report Type: Spontaneous
  Country: CA (occurrence: CA)
  Receive Date: 20250305
  Receipt Date: 20250305
  Transmission Date: 20250408
  Serious: Yes (Other)
  Sender: TEVA
  Company Number: CA-TEVA-VS-3305474

PATIENT
  Age: 31 Year
  Sex: Female

DRUGS (2)
  1. PREDNISONE [Suspect]
     Active Substance: PREDNISONE
     Indication: Peripheral swelling
     Dosage: DOSE FORM : NOT SPECIFIED
     Route: 065
  2. MOXIFLOXACIN [Suspect]
     Active Substance: MOXIFLOXACIN
     Indication: Infection prophylaxis
     Route: 065

REACTIONS (2)
  - Tendon discomfort [Recovering/Resolving]
  - Tendon disorder [Recovering/Resolving]
